FAERS Safety Report 14991219 (Version 2)
Quarter: 2020Q1

REPORT INFORMATION
  Report Type: Spontaneous
  Country: US (occurrence: US)
  Receive Date: 20180608
  Receipt Date: 20200218
  Transmission Date: 20200409
  Serious: Yes (Death, Other)
  Sender: FDA-Public Use
  Company Number: US-VERTEX PHARMACEUTICALS-2018-003761

PATIENT
  Sex: Male

DRUGS (1)
  1. SYMDEKO [Suspect]
     Active Substance: IVACAFTOR\TEZACAFTOR
     Indication: CYSTIC FIBROSIS
     Dosage: TEZACAFTOR 100 MG, IVACAFTOR 150 MG; IVACAFTOR 150 MG, FREQUENCY UNKNOWN
     Route: 048
     Dates: start: 20180530

REACTIONS (2)
  - Hospice care [Unknown]
  - Death [Fatal]

NARRATIVE: CASE EVENT DATE: 2018
